FAERS Safety Report 20094139 (Version 2)
Quarter: 2021Q4

REPORT INFORMATION
  Report Type: Spontaneous
  Country: JP (occurrence: JP)
  Receive Date: 20211122
  Receipt Date: 20211201
  Transmission Date: 20220303
  Serious: Yes (Hospitalization)
  Sender: FDA-Public Use
  Company Number: JP-KYOWAKIRIN-2021AKK019669

PATIENT
  Age: 8 Decade
  Sex: Female

DRUGS (3)
  1. DARBEPOETIN ALFA [Suspect]
     Active Substance: DARBEPOETIN ALFA
     Indication: Nephrogenic anaemia
     Dosage: 120 MICROGRAM, Q4WK
     Route: 065
  2. DARBEPOETIN ALFA [Suspect]
     Active Substance: DARBEPOETIN ALFA
     Dosage: 120 MICROGRAM, Q2WK
     Route: 065
  3. DARBEPOETIN ALFA [Suspect]
     Active Substance: DARBEPOETIN ALFA
     Dosage: 120 MICROGRAM
     Route: 065
     Dates: start: 20211115

REACTIONS (2)
  - Urinary tract infection [Unknown]
  - Product dose omission issue [Unknown]
